FAERS Safety Report 11610181 (Version 1)
Quarter: 2015Q3

REPORT INFORMATION
  Report Type: Spontaneous
  Country: US (occurrence: US)
  Receive Date: 20150916
  Receipt Date: 20150916
  Transmission Date: 20151125
  Serious: No
  Sender: FDA-Public Use
  Company Number: US-ELI_LILLY_AND_COMPANY-US201403003014

PATIENT
  Sex: Female

DRUGS (6)
  1. BAYER ASPIRIN [Concomitant]
     Active Substance: ASPIRIN
     Dosage: 81 MG, UNKNOWN
  2. HUMALOG [Suspect]
     Active Substance: INSULIN LISPRO
     Indication: DIABETES MELLITUS
     Dosage: UNK
     Route: 065
  3. HUMALOG [Suspect]
     Active Substance: INSULIN LISPRO
     Dosage: UNK
     Route: 065
  4. CLOPIDOGREL BISULFATE. [Concomitant]
     Active Substance: CLOPIDOGREL BISULFATE
  5. ISOSORBIDE MONONITRATE. [Concomitant]
     Active Substance: ISOSORBIDE MONONITRATE
  6. METFORMIN [Concomitant]
     Active Substance: METFORMIN HYDROCHLORIDE

REACTIONS (6)
  - Dizziness [Recovered/Resolved]
  - Sinus congestion [Recovering/Resolving]
  - Underdose [Recovered/Resolved]
  - Blood glucose increased [Recovered/Resolved]
  - Hypoacusis [Recovering/Resolving]
  - Eye disorder [Not Recovered/Not Resolved]

NARRATIVE: CASE EVENT DATE: 2013
